FAERS Safety Report 24303902 (Version 2)
Quarter: 2024Q3

REPORT INFORMATION
  Report Type: Spontaneous
  Country: US (occurrence: US)
  Receive Date: 20240910
  Receipt Date: 20240917
  Transmission Date: 20241017
  Serious: No
  Sender: PFIZER
  Company Number: US-PFIZER INC-202400251766

PATIENT
  Age: 67 Year
  Sex: Female
  Weight: 59.87 kg

DRUGS (8)
  1. ELREXFIO [Suspect]
     Active Substance: ELRANATAMAB-BCMM
     Indication: Plasma cell myeloma
     Dosage: UNK, WEEKLY
     Route: 051
  2. BACTRIM [Suspect]
     Active Substance: SULFAMETHOXAZOLE\TRIMETHOPRIM
     Dosage: 3X/WEEK
  3. LEVAQUIN [Suspect]
     Active Substance: LEVOFLOXACIN
     Dosage: 500 MG
  4. GABAPENTIN [Concomitant]
     Active Substance: GABAPENTIN
     Indication: Neuropathy peripheral
  5. BACLOFEN [Concomitant]
     Active Substance: BACLOFEN
  6. AMLODIPINE [Concomitant]
     Active Substance: AMLODIPINE BESYLATE
     Indication: Hypertension
  7. ACLOVIR [Concomitant]
     Indication: Infection
  8. VITAMINS NOS [Concomitant]
     Active Substance: VITAMINS

REACTIONS (1)
  - Skin exfoliation [Not Recovered/Not Resolved]
